FAERS Safety Report 15880800 (Version 1)
Quarter: 2019Q1

REPORT INFORMATION
  Report Type: Spontaneous
  Country: FR (occurrence: FR)
  Receive Date: 20190128
  Receipt Date: 20190128
  Transmission Date: 20190417
  Serious: Yes (Hospitalization)
  Sender: FDA-Public Use
  Company Number: FR-TEVA-2019-FR-1003468

PATIENT
  Age: 23 Year
  Sex: Male
  Weight: 74 kg

DRUGS (2)
  1. SILDENAFIL. [Suspect]
     Active Substance: SILDENAFIL
     Route: 048
  2. ROHYPNOL [Suspect]
     Active Substance: FLUNITRAZEPAM
     Route: 048

REACTIONS (3)
  - Dyspnoea [Recovered/Resolved]
  - Myocarditis [Recovering/Resolving]
  - Palpitations [Recovered/Resolved]

NARRATIVE: CASE EVENT DATE: 20181218
